FAERS Safety Report 9702001 (Version 3)
Quarter: 2014Q4

REPORT INFORMATION
  Report Type: Spontaneous
  Country: TR (occurrence: TR)
  Receive Date: 20131121
  Receipt Date: 20141024
  Transmission Date: 20150529
  Serious: Yes (Other)
  Sender: FDA-Public Use
  Company Number: TR-VERTEX PHARMACEUTICALS INC-2013-011251

PATIENT
  Age: 55 Year
  Sex: Female

DRUGS (9)
  1. INCIVO [Suspect]
     Active Substance: TELAPREVIR
     Dosage: 750 MG, TID
     Route: 048
     Dates: start: 20130614
  2. PEGINTRON [Suspect]
     Active Substance: PEGINTERFERON ALFA-2B
     Dosage: 100 ?G, QW
     Route: 065
     Dates: start: 20130614
  3. INCIVO [Suspect]
     Active Substance: TELAPREVIR
     Indication: HEPATITIS C
     Dosage: 750 MG, TID
     Route: 048
     Dates: start: 20130311
  4. INCIVO [Suspect]
     Active Substance: TELAPREVIR
     Dosage: 750 MG, TID
     Route: 048
     Dates: start: 20130410
  5. PEGINTRON [Suspect]
     Active Substance: PEGINTERFERON ALFA-2B
     Indication: HEPATITIS C
     Dosage: 100 ?G, QW
     Route: 065
     Dates: start: 20130311
  6. RIBAVIRIN. [Suspect]
     Active Substance: RIBAVIRIN
     Dosage: 1000 ?G, QD
     Route: 065
     Dates: start: 20130614
  7. RIBAVIRIN. [Suspect]
     Active Substance: RIBAVIRIN
     Indication: HEPATITIS C
     Dosage: 1000 ?G, QD
     Route: 065
     Dates: start: 20130311
  8. RIBAVIRIN. [Suspect]
     Active Substance: RIBAVIRIN
     Dosage: 1000 ?G, QD
     Route: 065
     Dates: start: 20130410
  9. PEGINTRON [Suspect]
     Active Substance: PEGINTERFERON ALFA-2B
     Dosage: 100 ?G, QW
     Route: 065
     Dates: start: 20130410

REACTIONS (2)
  - Anaemia [Unknown]
  - Leukopenia [Unknown]
